FAERS Safety Report 5744095-1 (Version None)
Quarter: 2008Q2

REPORT INFORMATION
  Report Type: 
  Country: None (occurrence: None)
  Receive Date: 20080520
  Receipt Date: 20080515
  Transmission Date: 20081010
  Serious: Yes (Death)
  Sender: FDA-Public Use
  Company Number: A0728624A

PATIENT
  Age: 66 Year
  Sex: Male

DRUGS (1)
  1. SERETIDE [Suspect]
     Dates: start: 20080301

REACTIONS (1)
  - RESPIRATORY FAILURE [None]
